FAERS Safety Report 5891904-1 (Version None)
Quarter: 2008Q3

REPORT INFORMATION
  Report Type: 
  Country: None (occurrence: None)
  Receive Date: 20080908
  Receipt Date: 20080611
  Transmission Date: 20090109
  Serious: No
  Sender: FDA-Public Use
  Company Number: 002#1#2008-00499

PATIENT
  Age: 57 Year
  Sex: Male

DRUGS (7)
  1. NEUPRO [Suspect]
     Indication: PARKINSON'S DISEASE
     Dosage: 6MG/24H, 1 IN 1 D, TRANSDERMAL : 4MG/24H, 1 IN 1 D, TRANSDERMAL : 2MG/24H, 1 IN 1 D, TRANSDERMAL
     Route: 062
     Dates: end: 20080330
  2. NEUPRO [Suspect]
     Indication: PARKINSON'S DISEASE
     Dosage: 6MG/24H, 1 IN 1 D, TRANSDERMAL : 4MG/24H, 1 IN 1 D, TRANSDERMAL : 2MG/24H, 1 IN 1 D, TRANSDERMAL
     Route: 062
     Dates: start: 20080330, end: 20080415
  3. NEUPRO [Suspect]
     Indication: PARKINSON'S DISEASE
     Dosage: 6MG/24H, 1 IN 1 D, TRANSDERMAL : 4MG/24H, 1 IN 1 D, TRANSDERMAL : 2MG/24H, 1 IN 1 D, TRANSDERMAL
     Route: 062
     Dates: start: 20080415, end: 20080501
  4. STALEVO 100 [Concomitant]
  5. AZILECT [Concomitant]
  6. REQUIP [Concomitant]
  7. EXELON [Concomitant]

REACTIONS (2)
  - CONDITION AGGRAVATED [None]
  - VISUAL IMPAIRMENT [None]
